FAERS Safety Report 8885666 (Version 2)
Quarter: 2012Q4

REPORT INFORMATION
  Report Type: 
  Country: US (occurrence: US)
  Receive Date: 20121102
  Receipt Date: 20121126
  Transmission Date: 20130627
  Serious: Yes (Other)
  Sender: FDA-Public Use
  Company Number: US-PFIZER INC-2012271151

PATIENT
  Age: 79 Year
  Sex: Female
  Weight: 60.77 kg

DRUGS (7)
  1. REVATIO [Suspect]
     Indication: PULMONARY HYPERTENSION
     Dosage: 20 mg, 3x/day
     Dates: start: 20120301, end: 20121001
  2. REVATIO [Suspect]
     Dosage: 20 mg, 3x/day (Q8H)
     Route: 048
     Dates: start: 20120411
  3. TRACLEER [Suspect]
     Indication: PULMONARY HYPERTENSION
     Dosage: UNK, 2x/day
     Dates: start: 201210
  4. DIGOXIN [Concomitant]
     Dosage: 0.125 mg, daily
  5. TOPROL XL [Concomitant]
     Dosage: 25 mg, daily
  6. LASIX [Concomitant]
     Dosage: 20 mg, daily
  7. PRADAXA [Concomitant]
     Dosage: 150 mg, 2x/day

REACTIONS (5)
  - Echocardiogram abnormal [Unknown]
  - Dyspnoea [Recovering/Resolving]
  - Drug ineffective [Unknown]
  - Rash [Recovering/Resolving]
  - Pruritus [Recovered/Resolved]
